FAERS Safety Report 5796419-7 (Version None)
Quarter: 2008Q3

REPORT INFORMATION
  Report Type: 
  Country: None (occurrence: None)
  Receive Date: 20080701
  Receipt Date: 20080626
  Transmission Date: 20090109
  Serious: Yes (Other)
  Sender: FDA-Public Use
  Company Number: A0735020A

PATIENT
  Age: 49 Year
  Sex: Male

DRUGS (1)
  1. NICOTINE LOZENGE [Suspect]
     Indication: SMOKING CESSATION THERAPY
     Dosage: 2MG THREE TIMES PER DAY
     Route: 065
     Dates: start: 20080616, end: 20080622

REACTIONS (3)
  - ASPHYXIA [None]
  - COUGH [None]
  - HYPERSENSITIVITY [None]
